FAERS Safety Report 7828599-3 (Version None)
Quarter: 2011Q4

REPORT INFORMATION
  Report Type: 
  Country: None (occurrence: None)
  Receive Date: 20111020
  Receipt Date: 20111014
  Transmission Date: 20120403
  Serious: Yes (Hospitalization, Other)
  Sender: FDA-Public Use
  Company Number: US-AMGEN-USASP2011044306

PATIENT
  Age: 21 Year
  Sex: Male
  Weight: 112 kg

DRUGS (6)
  1. IVIGLOB-EX [Concomitant]
     Indication: IDIOPATHIC THROMBOCYTOPENIC PURPURA
  2. PENICILLIN V POTASSIUM [Concomitant]
  3. FOLIC ACID [Concomitant]
  4. NPLATE [Suspect]
     Indication: EVANS SYNDROME
  5. NPLATE [Suspect]
     Indication: IDIOPATHIC THROMBOCYTOPENIC PURPURA
     Dosage: 1 MUG/KG, UNK
     Dates: start: 20110209, end: 20110513
  6. CORTICOSTEROIDS [Concomitant]
     Indication: IDIOPATHIC THROMBOCYTOPENIC PURPURA

REACTIONS (3)
  - DRUG INEFFECTIVE [None]
  - PLATELET COUNT DECREASED [None]
  - GASTRITIS [None]
